FAERS Safety Report 6004760-8 (Version None)
Quarter: 2008Q4

REPORT INFORMATION
  Report Type: 
  Country: None (occurrence: None)
  Receive Date: 20081216
  Receipt Date: 20081205
  Transmission Date: 20090506
  Serious: Yes (Other)
  Sender: FDA-Public Use
  Company Number: GB-PFIZER INC-2008152706

PATIENT

DRUGS (1)
  1. SULFASALAZINE [Suspect]

REACTIONS (1)
  - ENCEPHALOPATHY [None]
